FAERS Safety Report 6200683-X (Version None)
Quarter: 2009Q2

REPORT INFORMATION
  Report Type: 
  Country: None (occurrence: None)
  Receive Date: 20090522
  Receipt Date: 20090512
  Transmission Date: 20091009
  Serious: Yes (Hospitalization)
  Sender: FDA-Public Use
  Company Number: ES-MERCK-0905ESP00028

PATIENT
  Sex: Female

DRUGS (2)
  1. ZETIA [Suspect]
     Indication: MIXED HYPERLIPIDAEMIA
     Route: 048
     Dates: end: 20090511
  2. STATIN (UNSPECIFIED) [Concomitant]
     Indication: MIXED HYPERLIPIDAEMIA
     Route: 065
     Dates: end: 20090511

REACTIONS (1)
  - DIVERTICULITIS [None]
